FAERS Safety Report 4561080-6 (Version None)
Quarter: 2005Q1

REPORT INFORMATION
  Report Type: 
  Country: None (occurrence: None)
  Receive Date: 20050126
  Receipt Date: 20041201
  Transmission Date: 20050727
  Serious: No
  Sender: FDA-Public Use
  Company Number: US-BRISTOL-MYERS SQUIBB COMPANY-12782280

PATIENT
  Age: 71 Year
  Sex: Female
  Weight: 107 kg

DRUGS (3)
  1. GLUCOPHAGE [Suspect]
     Dates: start: 20030401
  2. MULTIVITAMIN [Concomitant]
  3. AVAPRO [Concomitant]

REACTIONS (1)
  - ANXIETY [None]
